FAERS Safety Report 10263332 (Version 2)
Quarter: 2015Q1

REPORT INFORMATION
  Report Type: Spontaneous
  Country: US (occurrence: US)
  Receive Date: 20140626
  Receipt Date: 20150123
  Transmission Date: 20150720
  Serious: No
  Sender: FDA-Public Use
  Company Number: US-ASTRAZENECA-2014SE24655

PATIENT
  Age: 59 Year
  Sex: Female
  Weight: 79.4 kg

DRUGS (4)
  1. LOSARTAN WITH POTASSIUM [Concomitant]
     Indication: HYPERTENSION
     Dosage: 25MG NR
     Route: 048
  2. BRILINTA [Suspect]
     Active Substance: TICAGRELOR
     Indication: STENT PLACEMENT
     Route: 048
     Dates: start: 20140206
  3. ZOCOR [Concomitant]
     Active Substance: SIMVASTATIN
     Indication: BLOOD CHOLESTEROL INCREASED
     Route: 048
     Dates: start: 2014
  4. ASPIRIN. [Concomitant]
     Active Substance: ASPIRIN

REACTIONS (6)
  - Blood cholesterol increased [Not Recovered/Not Resolved]
  - Intentional product misuse [Recovered/Resolved]
  - Limb injury [Unknown]
  - Contusion [Recovered/Resolved]
  - Abdominal discomfort [Unknown]
  - Extra dose administered [Unknown]

NARRATIVE: CASE EVENT DATE: 2014
